FAERS Safety Report 12262261 (Version 1)
Quarter: 2016Q2

REPORT INFORMATION
  Report Type: Spontaneous
  Country: US (occurrence: None)
  Receive Date: 20160412
  Receipt Date: 20160412
  Transmission Date: 20160815
  Serious: Yes (Other)
  Sender: FDA-Public Use
  Company Number: None

PATIENT
  Age: 36 Year
  Sex: Female
  Weight: 72.58 kg

DRUGS (2)
  1. DAILY VITAMINS ^ONE A DAY^ [Concomitant]
     Active Substance: VITAMINS
  2. NUVARING [Suspect]
     Active Substance: ETHINYL ESTRADIOL\ETONOGESTREL
     Indication: CONTRACEPTION
     Dosage: REPLACE IN 4 WEEKS VAGINAL
     Route: 067

REACTIONS (9)
  - Nausea [None]
  - Stomatitis [None]
  - Headache [None]
  - Pregnancy [None]
  - Amenorrhoea [None]
  - Infertility female [None]
  - Maternal exposure before pregnancy [None]
  - Menorrhagia [None]
  - Abortion spontaneous [None]

NARRATIVE: CASE EVENT DATE: 20151015
